FAERS Safety Report 24156198 (Version 1)
Quarter: 2024Q3

REPORT INFORMATION
  Report Type: Other
  Country: CA (occurrence: CA)
  Receive Date: 20240731
  Receipt Date: 20240731
  Transmission Date: 20241017
  Serious: Yes (Hospitalization)
  Sender: APOTEX
  Company Number: CA-APOTEX-2024AP008803

PATIENT
  Sex: Female

DRUGS (1)
  1. DASATINIB [Suspect]
     Active Substance: DASATINIB
     Indication: Leukaemia
     Dosage: 70 MILLIGRAM, QD (70MG PO ONCE A DAY 1 XDAILY)
     Route: 048
     Dates: start: 20240507, end: 20240703

REACTIONS (2)
  - Hospitalisation [Unknown]
  - Adverse drug reaction [Unknown]

NARRATIVE: CASE EVENT DATE: 20240101
